FAERS Safety Report 10076585 (Version 1)
Quarter: 2014Q2

REPORT INFORMATION
  Report Type: Spontaneous
  Country: US (occurrence: US)
  Receive Date: 20140414
  Receipt Date: 20140414
  Transmission Date: 20141212
  Serious: No
  Sender: FDA-Public Use
  Company Number: US-PFIZER INC-2014102649

PATIENT
  Age: 51 Year
  Sex: Male

DRUGS (1)
  1. XALKORI [Suspect]
     Indication: NEOPLASM MALIGNANT
     Dosage: 250 MG, 2X/DAY (1 CAPSULE BID)
     Dates: start: 20130913

REACTIONS (2)
  - Disease progression [Unknown]
  - Neoplasm malignant [Unknown]
